FAERS Safety Report 18663087 (Version 1)
Quarter: 2020Q4

REPORT INFORMATION
  Report Type: Report from Study
  Country: None (occurrence: US)
  Receive Date: 20201224
  Receipt Date: 20201224
  Transmission Date: 20210114
  Serious: No
  Sender: FDA-Public Use
  Company Number: US-ABBVIE-16P-163-1763955-00

PATIENT
  Age: 67 Year
  Sex: Male

DRUGS (10)
  1. VENCLEXTA [Suspect]
     Active Substance: VENETOCLAX
     Indication: PRODUCT USED FOR UNKNOWN INDICATION
     Dosage: X 7 DAYS
     Route: 048
     Dates: start: 20161010, end: 20161016
  2. ELIQUIS [Concomitant]
     Active Substance: APIXABAN
     Indication: ANTICOAGULANT THERAPY
  3. ALLOPURINOL. [Concomitant]
     Active Substance: ALLOPURINOL
     Indication: CHEMOTHERAPY
     Dates: end: 20161101
  4. BISOPROLOL FUMERATE [Concomitant]
     Active Substance: BISOPROLOL FUMARATE
     Indication: HEART RATE IRREGULAR
     Dates: start: 20160820
  5. VENCLEXTA [Suspect]
     Active Substance: VENETOCLAX
     Dosage: X 7 DAYS
     Route: 048
     Dates: start: 20161024, end: 20161030
  6. IMBRUVICA [Suspect]
     Active Substance: IBRUTINIB
     Indication: PRODUCT USED FOR UNKNOWN INDICATION
     Route: 048
     Dates: start: 201608
  7. IMBRUVICA [Suspect]
     Active Substance: IBRUTINIB
     Route: 048
     Dates: start: 201611
  8. AMIODARONE [Concomitant]
     Active Substance: AMIODARONE
     Indication: HEART RATE IRREGULAR
     Dates: start: 20160820
  9. VENCLEXTA [Suspect]
     Active Substance: VENETOCLAX
     Dosage: X 6 DAYS
     Route: 048
     Dates: start: 20161031, end: 20161105
  10. VENCLEXTA [Suspect]
     Active Substance: VENETOCLAX
     Dosage: X 7 DAYS
     Route: 048
     Dates: start: 20161017, end: 20161023

REACTIONS (4)
  - Pruritus [Not Recovered/Not Resolved]
  - Oedema peripheral [Not Recovered/Not Resolved]
  - Lymphadenopathy [Not Recovered/Not Resolved]
  - Heart rate irregular [Unknown]

NARRATIVE: CASE EVENT DATE: 201608
